FAERS Safety Report 9314234 (Version 3)
Quarter: 2013Q4

REPORT INFORMATION
  Report Type: Spontaneous
  Country: FR (occurrence: None)
  Receive Date: 20130522
  Receipt Date: 20131113
  Transmission Date: 20140711
  Serious: Yes (Other)
  Sender: FDA-Public Use
  Company Number: HRA-CDB20130059

PATIENT
  Sex: Female
  Weight: 54 kg

DRUGS (1)
  1. ELLAONE [Suspect]
     Indication: POST COITAL CONTRACEPTION
     Dosage: 1 IN 1 D.
     Dates: start: 20121227

REACTIONS (4)
  - Pregnancy [None]
  - Pregnancy after post coital contraception [None]
  - Exposure during pregnancy [None]
  - Maternal exposure timing unspecified [None]
